FAERS Safety Report 4440041-1 (Version None)
Quarter: 2004Q3

REPORT INFORMATION
  Report Type: 
  Country: None (occurrence: None)
  Receive Date: 20040902
  Receipt Date: 20040825
  Transmission Date: 20050211
  Serious: Yes (Other)
  Sender: FDA-Public Use
  Company Number: PHBS2004CL11482

PATIENT
  Age: 62 Year
  Sex: Male

DRUGS (4)
  1. TAREG D [Suspect]
     Route: 048
     Dates: start: 20040807
  2. CARDURA [Concomitant]
     Dosage: UNK, QD
  3. LIPITOR [Concomitant]
     Dosage: UNK, QD
  4. CARDIOASPIRIN [Concomitant]
     Dosage: 100 MG, QD

REACTIONS (11)
  - ABDOMINAL DISCOMFORT [None]
  - ABDOMINAL PAIN [None]
  - BALANCE DISORDER [None]
  - CHILLS [None]
  - DYSURIA [None]
  - GASTRIC DISORDER [None]
  - PROSTATITIS [None]
  - PYREXIA [None]
  - SOMNOLENCE [None]
  - STRESS SYMPTOMS [None]
  - URINARY TRACT INFECTION [None]
